FAERS Safety Report 12329650 (Version 1)
Quarter: 2016Q2

REPORT INFORMATION
  Report Type: Spontaneous
  Country: RU (occurrence: RU)
  Receive Date: 20160503
  Receipt Date: 20160503
  Transmission Date: 20160815
  Serious: Yes (Hospitalization)
  Sender: FDA-Public Use
  Company Number: RU-ASTRAZENECA-2016SE46869

PATIENT
  Age: 9 Year
  Sex: Male

DRUGS (2)
  1. PULMICORT TURBUHALER [Suspect]
     Active Substance: BUDESONIDE
     Indication: ASTHMA
     Route: 055
  2. EUPHYLLINE (AMINOPHYLLINE) [Concomitant]
     Indication: ASTHMA

REACTIONS (1)
  - Cardiac failure [Recovered/Resolved]
